FAERS Safety Report 4991571-5 (Version None)
Quarter: 2006Q2

REPORT INFORMATION
  Report Type: 
  Country: None (occurrence: None)
  Receive Date: 20060502
  Receipt Date: 20060419
  Transmission Date: 20061013
  Serious: Yes (Hospitalization, Other)
  Sender: FDA-Public Use
  Company Number: MC200600275

PATIENT
  Age: 81 Year
  Sex: Male

DRUGS (2)
  1. ANGIOMAX [Suspect]
     Indication: VASCULAR BYPASS GRAFT
     Dosage: BOLUS, IV BOLUS; SEE IMAGE
     Route: 040
     Dates: start: 20060413, end: 20060413
  2. ANGIOMAX [Suspect]
     Indication: VASCULAR BYPASS GRAFT
     Dosage: BOLUS, IV BOLUS; SEE IMAGE
     Route: 040
     Dates: start: 20060413

REACTIONS (3)
  - ARRHYTHMIA [None]
  - HAEMORRHAGE [None]
  - RENAL FAILURE [None]
